FAERS Safety Report 18137582 (Version 1)
Quarter: 2020Q3

REPORT INFORMATION
  Report Type: Spontaneous
  Country: FI (occurrence: FI)
  Receive Date: 20200812
  Receipt Date: 20200812
  Transmission Date: 20201103
  Serious: Yes (Other)
  Sender: FDA-Public Use
  Company Number: FI-ROCHE-2655522

PATIENT
  Age: 35 Year
  Sex: Female

DRUGS (6)
  1. SOLU?CORTEF [Concomitant]
     Active Substance: HYDROCORTISONE SODIUM SUCCINATE
  2. OCREVUS [Suspect]
     Active Substance: OCRELIZUMAB
     Indication: MULTIPLE SCLEROSIS
     Dosage: MIXED IN 500 ML NACL 0.9%
     Route: 042
     Dates: start: 20190527
  3. PARACETAMOL [Concomitant]
     Active Substance: ACETAMINOPHEN
     Route: 042
  4. OCREVUS [Suspect]
     Active Substance: OCRELIZUMAB
     Dosage: IN TOTAL, THE PATIENT RECEIVED 200 ML OF THE OCREVUS INFUSION
     Route: 042
     Dates: start: 20200702, end: 20200702
  5. HISTEC [Concomitant]
     Active Substance: CETIRIZINE HYDROCHLORIDE
     Route: 042
  6. SOLU?MEDROL [Concomitant]
     Active Substance: METHYLPREDNISOLONE SODIUM SUCCINATE
     Dosage: MIXED IN 100 ML NACL 0.9%
     Route: 042

REACTIONS (13)
  - Pruritus [Unknown]
  - Paraesthesia [Unknown]
  - Chills [Unknown]
  - Gastroenteritis viral [Recovering/Resolving]
  - Dyspnoea [Recovering/Resolving]
  - Headache [Recovered/Resolved]
  - Dehydration [Recovering/Resolving]
  - Paraesthesia oral [Unknown]
  - Diarrhoea [Recovering/Resolving]
  - Oral pruritus [Unknown]
  - Depression [Unknown]
  - Oropharyngeal pain [Unknown]
  - Rhinorrhoea [Unknown]

NARRATIVE: CASE EVENT DATE: 20190527
